FAERS Safety Report 5950958-4 (Version None)
Quarter: 2008Q4

REPORT INFORMATION
  Report Type: 
  Country: None (occurrence: None)
  Receive Date: 20081112
  Receipt Date: 20081031
  Transmission Date: 20090506
  Serious: Yes (Death)
  Sender: FDA-Public Use
  Company Number: JP-PFIZER INC-2008092851

PATIENT
  Sex: Male
  Weight: 33.3 kg

DRUGS (11)
  1. ZYVOX [Suspect]
     Indication: PNEUMONIA
     Route: 048
     Dates: start: 20081011, end: 20081013
  2. LIPLE [Concomitant]
     Route: 042
  3. DIGOSIN [Concomitant]
     Route: 048
  4. WARFARIN SODIUM [Concomitant]
     Route: 048
  5. BLOPRESS [Concomitant]
     Route: 048
  6. ANPLAG [Concomitant]
     Route: 048
  7. PROCYLIN [Concomitant]
     Route: 048
  8. LASIX [Concomitant]
     Route: 048
  9. FAMOTIDINE [Concomitant]
     Route: 048
  10. EVIPROSTAT [Concomitant]
     Route: 048
  11. CRAVIT [Concomitant]
     Route: 048
     Dates: start: 20080101, end: 20080101

REACTIONS (1)
  - DEATH [None]
